FAERS Safety Report 9182736 (Version 1)
Quarter: 2012Q4

REPORT INFORMATION
  Report Type: 
  Country: AR (occurrence: AR)
  Receive Date: 20121030
  Receipt Date: 20121030
  Transmission Date: 20130627
  Serious: Yes (Other)
  Sender: FDA-Public Use
  Company Number: AR-ROXANE LABORATORIES, INC.-2012-RO-02069RO

PATIENT
  Age: 67 Year
  Sex: Male

DRUGS (10)
  1. MIDAZOLAM [Suspect]
     Indication: ANAESTHETIC PREMEDICATION
     Dosage: 3 mg
  2. MORPHINE [Suspect]
     Indication: EPIDURAL ANAESTHESIA
     Route: 037
  3. FENTANYL [Suspect]
     Indication: ANAESTHETIC PREMEDICATION
     Dosage: 100 mcg
  4. FENTANYL [Suspect]
     Route: 042
  5. PROPOFOL [Suspect]
     Indication: GENERAL ANAESTHESIA
  6. REMIFENTANIL [Suspect]
     Indication: GENERAL ANAESTHESIA
  7. BUPIVACAINE [Suspect]
     Indication: EPIDURAL ANAESTHESIA
     Route: 037
  8. CARVEDILOL [Concomitant]
     Indication: MYOCARDIAL INFARCTION
  9. ASPIRIN [Concomitant]
     Indication: MYOCARDIAL INFARCTION
  10. ATORVASTATIN [Concomitant]
     Indication: MYOCARDIAL INFARCTION

REACTIONS (6)
  - Nystagmus [Recovered/Resolved]
  - Hyperhidrosis [Recovered/Resolved]
  - Vertigo [Recovered/Resolved]
  - Pruritus [Unknown]
  - Nausea [Unknown]
  - Vomiting [Unknown]
